FAERS Safety Report 10035087 (Version 1)
Quarter: 2014Q1

REPORT INFORMATION
  Report Type: Spontaneous
  Country: US (occurrence: None)
  Receive Date: 20140306
  Receipt Date: 20140306
  Transmission Date: 20141002
  Serious: Yes (Other)
  Sender: FDA-Public Use
  Company Number: 163-21880-13062892

PATIENT
  Age: 78 Year
  Sex: Male
  Weight: 68.04 kg

DRUGS (10)
  1. REVLIMID (LENALIDOMIDE) (10 MILLIGRAM, CAPSULES) [Suspect]
     Indication: MYELOFIBROSIS
     Route: 048
     Dates: start: 20100101
  2. FUROSEMIDE (FUROSEMIDE) (TABLETS) [Concomitant]
  3. LYRICA (PREGABALIN) (CAPSULES) [Concomitant]
  4. TRAMADOL HCL (TRAMADOL HYDROCHLORIDE) (CAPSULES) [Concomitant]
  5. OMEPRAZOLE (OMEPRAZOLE) (CAPSULES) [Concomitant]
  6. FERROUS FUMARATE (FERROUS FUMARATE) (UNKNOWN) [Concomitant]
  7. ALLOPURINOL (ALLOPURINOL) (UNKNOWN) [Concomitant]
  8. MULTIVITAMINS (MULTIVITAMINS) (UNKNOWN) [Concomitant]
  9. ANDRODERM (TESTOSTERONE) (UNKNOWN) [Concomitant]
  10. BABY ASPIRIN (ACETYLSALICYLIC ACID) (TABLETS) [Concomitant]

REACTIONS (1)
  - Squamous cell carcinoma of skin [None]
